FAERS Safety Report 17833557 (Version 1)
Quarter: 2020Q2

REPORT INFORMATION
  Report Type: Spontaneous
  Country: US (occurrence: US)
  Receive Date: 20200527
  Receipt Date: 20200527
  Transmission Date: 20200714
  Serious: Yes (Death)
  Sender: FDA-Public Use
  Company Number: None

PATIENT
  Age: 58 Year
  Sex: Male
  Weight: 94.8 kg

DRUGS (2)
  1. IBRUTINIB [Suspect]
     Active Substance: IBRUTINIB
     Indication: MANTLE CELL LYMPHOMA
     Route: 048
     Dates: start: 20200311, end: 20200430
  2. HEPARIN 5000 UNITS SQ BID [Suspect]
     Active Substance: HEPARIN SODIUM
     Dates: start: 20200420, end: 20200430

REACTIONS (3)
  - Haemorrhagic stroke [None]
  - Product label confusion [None]
  - Drug interaction [None]

NARRATIVE: CASE EVENT DATE: 20200430
